FAERS Safety Report 5197522-5 (Version None)
Quarter: 2006Q4

REPORT INFORMATION
  Report Type: 
  Country: None (occurrence: None)
  Receive Date: 20060926
  Receipt Date: 20010129
  Transmission Date: 20070319
  Serious: Yes (Disabling)
  Sender: FDA-Public Use
  Company Number: PHEH2001US01281

PATIENT
  Age: 48 Year
  Sex: Female

DRUGS (5)
  1. VOLTAREN [Suspect]
     Indication: ARTHRITIS
     Dosage: 75 MG, BID, ORAL
     Route: 048
     Dates: start: 19910101, end: 20010129
  2. LANSOPRAZOLE [Concomitant]
  3. AMOXICILLIN [Concomitant]
  4. PLAQUENIL [Concomitant]
  5. CLARITHROMYCIN [Concomitant]

REACTIONS (1)
  - VISUAL DISTURBANCE [None]
